FAERS Safety Report 16280648 (Version 2)
Quarter: 2019Q2

REPORT INFORMATION
  Report Type: Spontaneous
  Country: US (occurrence: US)
  Receive Date: 20190507
  Receipt Date: 20190514
  Transmission Date: 20190711
  Serious: Yes (Hospitalization, Other)
  Sender: FDA-Public Use
  Company Number: US-ASTRAZENECA-2019SE68691

PATIENT
  Age: 60 Year
  Sex: Female
  Weight: 54.4 kg

DRUGS (7)
  1. LYNPARZA [Suspect]
     Active Substance: OLAPARIB
     Indication: BREAST CANCER
     Route: 048
     Dates: start: 20190221
  2. LYNPARZA [Suspect]
     Active Substance: OLAPARIB
     Indication: OVARIAN CANCER
     Route: 048
     Dates: start: 20190321
  3. TOPROL XL [Suspect]
     Active Substance: METOPROLOL SUCCINATE
     Indication: HYPERTENSION
     Route: 048
  4. LYNPARZA [Suspect]
     Active Substance: OLAPARIB
     Indication: OVARIAN CANCER
     Route: 048
     Dates: start: 20190221
  5. XGEVA [Concomitant]
     Active Substance: DENOSUMAB
     Indication: BONE DISORDER
     Route: 058
  6. FASLODEX [Suspect]
     Active Substance: FULVESTRANT
     Indication: BREAST CANCER
     Route: 030
     Dates: start: 2018
  7. LYNPARZA [Suspect]
     Active Substance: OLAPARIB
     Indication: BREAST CANCER
     Route: 048
     Dates: start: 20190321

REACTIONS (13)
  - Chronic kidney disease [Unknown]
  - Hepatic neoplasm [Unknown]
  - Breast cancer [Recovered/Resolved with Sequelae]
  - Extrasystoles [Unknown]
  - Mycobacterium avium complex infection [Unknown]
  - Haemoglobin decreased [Unknown]
  - Platelet count decreased [Unknown]
  - Herpes zoster [Recovered/Resolved with Sequelae]
  - Oedema [Unknown]
  - Ovarian cancer [Unknown]
  - Gouty arthritis [Unknown]
  - Hepatic enzyme increased [Unknown]
  - Influenza [Unknown]

NARRATIVE: CASE EVENT DATE: 1992
